FAERS Safety Report 8413560-0 (Version None)
Quarter: 2012Q2

REPORT INFORMATION
  Report Type: 
  Country: None (occurrence: None)
  Receive Date: 20120605
  Receipt Date: 20120531
  Transmission Date: 20120825
  Serious: Yes (Hospitalization)
  Sender: FDA-Public Use
  Company Number: DE-GLAXOSMITHKLINE-D0075798A

PATIENT
  Sex: Male

DRUGS (6)
  1. DUTASTERIDE/TAMSULOSIN HYDROCHLORIDE [Suspect]
     Route: 048
     Dates: start: 20110801
  2. VALPROATE SODIUM [Concomitant]
     Dosage: 900MG PER DAY
     Route: 065
  3. IRBESARTAN AND HYDROCHLOROTHIAZIDE [Concomitant]
     Dosage: 75MG PER DAY
     Route: 065
  4. SIMVASTATIN [Concomitant]
     Dosage: 30MG PER DAY
     Route: 065
  5. ASPIRIN [Concomitant]
     Dosage: 100MG PER DAY
     Route: 065
  6. METOPROLOL TARTRATE [Concomitant]
     Dosage: 47.5MG PER DAY
     Route: 065

REACTIONS (7)
  - SYNCOPE [None]
  - LOSS OF CONSCIOUSNESS [None]
  - BRONCHOPNEUMONIA [None]
  - TACHYARRHYTHMIA [None]
  - EPILEPSY [None]
  - CLONUS [None]
  - ORTHOSTATIC HYPOTENSION [None]
